FAERS Safety Report 16211865 (Version 10)
Quarter: 2022Q1

REPORT INFORMATION
  Report Type: Spontaneous
  Country: US (occurrence: US)
  Receive Date: 20190418
  Receipt Date: 20220216
  Transmission Date: 20220423
  Serious: Yes (Other)
  Sender: FDA-Public Use
  Company Number: US-SA-2019SA107464

PATIENT
  Age: 70 Year
  Sex: Female

DRUGS (2)
  1. DUPIXENT [Suspect]
     Active Substance: DUPILUMAB
     Indication: Dermatitis atopic
     Dosage: 600 MG, 1X
     Route: 058
     Dates: start: 201903, end: 201903
  2. DUPIXENT [Suspect]
     Active Substance: DUPILUMAB
     Dosage: 300 MG, QOW
     Route: 058
     Dates: start: 2019

REACTIONS (12)
  - Pneumonia [Unknown]
  - Abscess [Unknown]
  - Infection [Unknown]
  - Body temperature increased [Unknown]
  - Malaise [Unknown]
  - Illness [Unknown]
  - Gastroenteritis viral [Unknown]
  - Pleurisy [Unknown]
  - Blood glucose increased [Unknown]
  - Rash morbilliform [Unknown]
  - Urticaria [Unknown]
  - Product dose omission issue [Unknown]

NARRATIVE: CASE EVENT DATE: 20190101
